FAERS Safety Report 8095313-9 (Version None)
Quarter: 2012Q1

REPORT INFORMATION
  Report Type: 
  Country: None (occurrence: None)
  Receive Date: 20120129
  Receipt Date: 20111230
  Transmission Date: 20120608
  Serious: No
  Sender: FDA-Public Use
  Company Number: US-ABBOTT-11P-163-0887858-00

PATIENT
  Sex: Female

DRUGS (2)
  1. HUMIRA [Suspect]
     Indication: RHEUMATOID ARTHRITIS
     Dates: end: 20110301
  2. HUMIRA [Suspect]
     Indication: PSORIASIS

REACTIONS (2)
  - RHEUMATOID ARTHRITIS [None]
  - PSORIASIS [None]
